FAERS Safety Report 7184477-7 (Version None)
Quarter: 2010Q4

REPORT INFORMATION
  Report Type: 
  Country: None (occurrence: None)
  Receive Date: 20101222
  Receipt Date: 20100520
  Transmission Date: 20110411
  Serious: Yes (Other)
  Sender: FDA-Public Use
  Company Number: US-AMGEN-QUU413577

PATIENT

DRUGS (1)
  1. ENBREL [Suspect]
     Indication: PSORIATIC ARTHROPATHY
     Dosage: 50 MG, QWK
     Route: 058
     Dates: start: 20090601

REACTIONS (7)
  - ASTHMA [None]
  - DEPRESSION [None]
  - EXERCISE TOLERANCE DECREASED [None]
  - MALAISE [None]
  - MUSCULAR WEAKNESS [None]
  - PANIC ATTACK [None]
  - WEIGHT INCREASED [None]
